FAERS Safety Report 19704507 (Version 1)
Quarter: 2021Q3

REPORT INFORMATION
  Report Type: Spontaneous
  Country: DE (occurrence: DE)
  Receive Date: 20210816
  Receipt Date: 20210816
  Transmission Date: 20211014
  Serious: Yes (Life-Threatening, Hospitalization, Other)
  Sender: FDA-Public Use
  Company Number: DE-MYLANLABS-2021M1051698

PATIENT
  Age: 72 Year
  Sex: Female
  Weight: 130 kg

DRUGS (5)
  1. INSULIN LISPRO [Concomitant]
     Active Substance: INSULIN LISPRO
     Dosage: 1 IE, 0?0?0?5, PEN
     Route: 058
  2. CAPTOPRIL/HYDROCHLOROTHIAZIDE [Suspect]
     Active Substance: CAPTOPRIL\HYDROCHLOROTHIAZIDE
     Indication: PRODUCT USED FOR UNKNOWN INDICATION
     Dosage: 50/25 MG, 0?1?1?0, TABLETTEN
     Route: 048
  3. DICLOFENAC [Suspect]
     Active Substance: DICLOFENAC
     Indication: PRODUCT USED FOR UNKNOWN INDICATION
     Dosage: 75 MG, 1?0?0?0, RETARD?TABLETTEN
     Route: 048
  4. LIPROLOG MIX [Concomitant]
     Active Substance: INSULIN LISPRO
     Dosage: 1 IE, 24?0?14?0, PEN
     Route: 058
  5. TORASEMIDE [Suspect]
     Active Substance: TORSEMIDE
     Indication: PRODUCT USED FOR UNKNOWN INDICATION
     Dosage: 20 MG, 1?0?0?0, TABLETTEN
     Route: 048

REACTIONS (4)
  - Abdominal pain [Unknown]
  - Nausea [Unknown]
  - Fall [Unknown]
  - General physical health deterioration [Unknown]
